FAERS Safety Report 15480734 (Version 2)
Quarter: 2019Q3

REPORT INFORMATION
  Report Type: Spontaneous
  Country: FR (occurrence: FR)
  Receive Date: 20181010
  Receipt Date: 20190711
  Transmission Date: 20191004
  Serious: Yes (Life-Threatening, Hospitalization)
  Sender: FDA-Public Use
  Company Number: PHHY2018FR119838

PATIENT
  Age: 71 Year
  Sex: Female
  Weight: 85 kg

DRUGS (2)
  1. COLCHIMAX (COLCHICINE/DICYCLOVERINE HYDROCHLORIDE) [Suspect]
     Active Substance: COLCHICINE\DICYCLOMINE HYDROCHLORIDE
     Indication: GOUT
     Dosage: 1 MG, QD
     Route: 048
     Dates: start: 20190507, end: 20190514
  2. METFORMIN [Suspect]
     Active Substance: METFORMIN HYDROCHLORIDE
     Indication: DIABETES MELLITUS
     Dosage: 2550 MG, QD
     Route: 048
     Dates: end: 20180804

REACTIONS (7)
  - Lactic acidosis [Recovered/Resolved]
  - Vomiting [Recovered/Resolved]
  - Acute kidney injury [Recovered/Resolved]
  - Lactic acidosis [Recovered/Resolved]
  - Coma [Recovered/Resolved]
  - Nausea [Recovered/Resolved]
  - Diarrhoea [Recovered/Resolved]

NARRATIVE: CASE EVENT DATE: 20180804
